FAERS Safety Report 8459603-X (Version None)
Quarter: 2012Q2

REPORT INFORMATION
  Report Type: 
  Country: None (occurrence: None)
  Receive Date: 20120622
  Receipt Date: 20120618
  Transmission Date: 20120825
  Serious: Yes (Other)
  Sender: FDA-Public Use
  Company Number: US-VIIV HEALTHCARE LIMITED-A0965562A

PATIENT
  Sex: Male

DRUGS (2)
  1. COMBIVIR [Suspect]
     Indication: ANTIRETROVIRAL THERAPY
     Dosage: 2TAB PER DAY
     Route: 064
     Dates: start: 20111222
  2. KALETRA [Suspect]
     Indication: ANTIRETROVIRAL THERAPY
     Dosage: 4TAB PER DAY
     Route: 064
     Dates: start: 20111222

REACTIONS (3)
  - PRENATAL SCREENING TEST ABNORMAL [None]
  - LIVE BIRTH [None]
  - FOETAL EXPOSURE DURING PREGNANCY [None]
